FAERS Safety Report 9581850 (Version 1)
Quarter: 2013Q4

REPORT INFORMATION
  Report Type: Spontaneous
  Country: US (occurrence: US)
  Receive Date: 20131002
  Receipt Date: 20131002
  Transmission Date: 20140711
  Serious: Yes (Other)
  Sender: FDA-Public Use
  Company Number: CHPA2013US015048

PATIENT
  Sex: Female

DRUGS (3)
  1. PREVACID 24HR 15MG [Suspect]
     Indication: GASTROOESOPHAGEAL REFLUX DISEASE
     Dosage: 15 MG, QD
     Route: 048
  2. PREVACID 24HR 15MG [Suspect]
     Indication: OFF LABEL USE
  3. OMEPRAZOLE DELAYED RELEASE CAPSULES 20MG (OMEPRAZOLE) [Suspect]

REACTIONS (2)
  - Fall [Unknown]
  - Incorrect drug administration duration [Unknown]
